FAERS Safety Report 6679399-1 (Version None)
Quarter: 2010Q2

REPORT INFORMATION
  Report Type: 
  Country: None (occurrence: None)
  Receive Date: 20100408
  Receipt Date: 20090806
  Transmission Date: 20101027
  Serious: No
  Sender: FDA-Public Use
  Company Number: 2009-00549

PATIENT
  Age: 54 Year
  Sex: Female
  Weight: 69.8539 kg

DRUGS (2)
  1. ZICAM COLD REMEDY NASAL GEL [Suspect]
     Dosage: FOR COLDS 3 YEARS
     Dates: start: 20060101
  2. ZICAM COLD REMEDY GEL SWABS [Suspect]
     Dosage: FOR COLDS 3 YEARS
     Dates: start: 20060101

REACTIONS (2)
  - AGEUSIA [None]
  - ANOSMIA [None]
